FAERS Safety Report 9861929 (Version 2)
Quarter: 2014Q3

REPORT INFORMATION
  Report Type: Spontaneous
  Country: US (occurrence: US)
  Receive Date: 20140203
  Receipt Date: 20140818
  Transmission Date: 20150326
  Serious: Yes (Other)
  Sender: FDA-Public Use
  Company Number: US-009507513-1401USA014858

PATIENT
  Sex: Female
  Weight: 69.84 kg

DRUGS (1)
  1. NUVARING [Suspect]
     Active Substance: ETHINYL ESTRADIOL\ETONOGESTREL
     Indication: CONTRACEPTION
     Dosage: 0.12-0.015 MG/24 HOUR. INSERT AND LEAVE IN PLACE FOR 3 WEEKS, REMOVE FOR 1 WEEK THEN REPEAT CYCLE
     Route: 067

REACTIONS (4)
  - Heart rate irregular [Unknown]
  - Pulmonary embolism [Unknown]
  - Palpitations [Unknown]
  - Deep vein thrombosis [Unknown]

NARRATIVE: CASE EVENT DATE: 20090706
